FAERS Safety Report 9059756 (Version 1)
Quarter: 2013Q1

REPORT INFORMATION
  Report Type: Spontaneous
  Country: US (occurrence: None)
  Receive Date: 20130206
  Receipt Date: 20130206
  Transmission Date: 20140127
  Serious: No
  Sender: FDA-Public Use
  Company Number: None

PATIENT
  Age: 52 Year
  Sex: Female
  Weight: 70.31 kg

DRUGS (1)
  1. MOXIFLOXACIN HYDROCHLORIDE [Suspect]
     Indication: CONJUNCTIVITIS
     Dosage: 1 DROP EACH EYE
     Route: 047
     Dates: start: 20130129, end: 20130201

REACTIONS (2)
  - Diplopia [None]
  - VIIth nerve paralysis [None]
